FAERS Safety Report 14869870 (Version 3)
Quarter: 2018Q2

REPORT INFORMATION
  Report Type: Report from Study
  Country: ES (occurrence: ES)
  Receive Date: 20180509
  Receipt Date: 20180618
  Transmission Date: 20180711
  Serious: Yes (Hospitalization)
  Sender: FDA-Public Use
  Company Number: ES-LPDUSPRD-20180761

PATIENT
  Age: 62 Year
  Sex: Male
  Weight: 98.4 kg

DRUGS (11)
  1. ULUNAR BREEZHALER [Concomitant]
     Active Substance: GLYCOPYRROLATE\INDACATEROL MALEATE
     Dosage: UNKNOWN
     Route: 065
  2. PARAPRES [Concomitant]
     Active Substance: CANDESARTAN CILEXETIL
     Dosage: 16 MG
     Route: 048
     Dates: start: 201401
  3. FERINJECT [Suspect]
     Active Substance: FERRIC CARBOXYMALTOSE
     Dosage: 1000 MG, 1 TOTAL
     Route: 042
     Dates: start: 20180305
  4. HYGROTON [Concomitant]
     Active Substance: CHLORTHALIDONE
     Dosage: 50 MG
     Route: 048
     Dates: start: 201802
  5. CLEXANE [Concomitant]
     Active Substance: ENOXAPARIN SODIUM
     Dosage: 60 MG
     Route: 051
  6. ESCITALOPRAM [Concomitant]
     Active Substance: ESCITALOPRAM OXALATE
     Dosage: 10 MG
     Route: 048
  7. CARDURAN NEO [Concomitant]
     Active Substance: DOXAZOSIN MESYLATE
     Dosage: 4 MG
     Route: 048
     Dates: start: 2010
  8. LACTOSE [Concomitant]
     Active Substance: LACTOSE
     Dosage: UNKNOWN
     Route: 065
  9. BISOPROLOL [Concomitant]
     Active Substance: BISOPROLOL
     Dosage: 5 MG
     Route: 048
  10. ELECOR [Concomitant]
     Active Substance: EPLERENONE
     Dosage: 25 MG
     Route: 048
     Dates: start: 2014
  11. SEGURIL [Concomitant]
     Active Substance: FUROSEMIDE
     Dosage: 40 MG
     Route: 048
     Dates: start: 201802

REACTIONS (1)
  - Chronic obstructive pulmonary disease [Recovered/Resolved]

NARRATIVE: CASE EVENT DATE: 20180416
